FAERS Safety Report 4429197-4 (Version None)
Quarter: 2004Q3

REPORT INFORMATION
  Report Type: 
  Country: None (occurrence: None)
  Receive Date: 20040726
  Receipt Date: 20040525
  Transmission Date: 20050211
  Serious: No
  Sender: FDA-Public Use
  Company Number: USA040567808

PATIENT
  Age: 79 Year
  Sex: Female

DRUGS (5)
  1. FORTEO [Suspect]
     Indication: OSTEOPOROSIS
     Dates: start: 20040101
  2. XANAX [Concomitant]
  3. CALCIUM [Concomitant]
  4. B12 COMPLEX [Concomitant]
  5. VITAMIN C [Concomitant]

REACTIONS (6)
  - GASTRITIS [None]
  - GASTROOESOPHAGEAL REFLUX DISEASE [None]
  - HOARSENESS [None]
  - INSOMNIA [None]
  - OROPHARYNGEAL SWELLING [None]
  - WEIGHT DECREASED [None]
